FAERS Safety Report 4593096-8 (Version None)
Quarter: 2005Q1

REPORT INFORMATION
  Report Type: 
  Country: None (occurrence: None)
  Receive Date: 20050224
  Receipt Date: 20040107
  Transmission Date: 20050727
  Serious: No
  Sender: FDA-Public Use
  Company Number: US-BRISTOL-MYERS SQUIBB COMPANY-12482154

PATIENT
  Age: 62 Year
  Sex: Female
  Weight: 95 kg

DRUGS (4)
  1. EXCEDRIN (MIGRAINE) [Suspect]
     Indication: BACK PAIN
     Dosage: NUMBER OF DOSES: BEEN TAKING ONE OR TWO EXCEDRIN ES FOR FIVE YEARS DAILY.
     Dates: end: 20040106
  2. BENICAR [Concomitant]
     Indication: HYPERTENSION
  3. METOPROLOL TARTRATE [Concomitant]
     Indication: HYPERTENSION
  4. LIPITOR [Concomitant]
     Indication: HYPERLIPIDAEMIA

REACTIONS (6)
  - BLADDER PAIN [None]
  - BLADDER SPASM [None]
  - HAEMATURIA [None]
  - HAEMORRHOIDS [None]
  - RECTAL HAEMORRHAGE [None]
  - URETHRAL PAIN [None]
